FAERS Safety Report 4902486-2 (Version None)
Quarter: 2006Q1

REPORT INFORMATION
  Report Type: 
  Country: None (occurrence: None)
  Receive Date: 20060202
  Receipt Date: 20060201
  Transmission Date: 20060701
  Serious: Yes (Other)
  Sender: FDA-Public Use
  Company Number: 2006S1000025

PATIENT
  Age: 15 Day
  Sex: Female

DRUGS (4)
  1. INOMAX [Suspect]
     Indication: PROPHYLAXIS
     Dosage: 5 PPM; INH_ GAS; INH  CONT
     Route: 055
     Dates: start: 20051219, end: 20060108
  2. INOMAX [Suspect]
     Indication: RESPIRATORY DISORDER
     Dosage: 5 PPM; INH_ GAS; INH  CONT
     Route: 055
     Dates: start: 20051219, end: 20060108
  3. IBUPROFEN [Concomitant]
  4. CAFFEINE(CAFFEINE) [Concomitant]

REACTIONS (2)
  - DRUG INEFFECTIVE [None]
  - PATENT DUCTUS ARTERIOSUS [None]
